FAERS Safety Report 25807941 (Version 1)
Quarter: 2025Q3

REPORT INFORMATION
  Report Type: Report from Study
  Country: US (occurrence: US)
  Receive Date: 20250916
  Receipt Date: 20250916
  Transmission Date: 20251021
  Serious: Yes (Other)
  Sender: ABBVIE
  Company Number: US-ABBVIE-6456128

PATIENT
  Age: 16 Year
  Sex: Female

DRUGS (5)
  1. HUMIRA [Suspect]
     Active Substance: ADALIMUMAB
     Indication: Crohn^s disease
     Route: 058
     Dates: start: 20220901, end: 2025
  2. HUMIRA [Suspect]
     Active Substance: ADALIMUMAB
     Route: 058
     Dates: start: 202506
  3. AFRIN [Concomitant]
     Active Substance: OXYMETAZOLINE HYDROCHLORIDE
     Indication: Product used for unknown indication
  4. PEPCID [Concomitant]
     Active Substance: FAMOTIDINE
     Indication: Product used for unknown indication
  5. HYRIMOZ [Suspect]
     Active Substance: ADALIMUMAB-ADAZ
     Indication: Product used for unknown indication
     Route: 065
     Dates: start: 202501

REACTIONS (30)
  - Loss of consciousness [Unknown]
  - Frequent bowel movements [Unknown]
  - Pallor [Unknown]
  - Fatigue [Recovered/Resolved]
  - Iron deficiency anaemia [Unknown]
  - Somnolence [Unknown]
  - Off label use [Unknown]
  - Headache [Unknown]
  - Blood pressure decreased [Recovering/Resolving]
  - Postural orthostatic tachycardia syndrome [Unknown]
  - Injection site urticaria [Recovered/Resolved]
  - Urticaria [Unknown]
  - Rash [Not Recovered/Not Resolved]
  - Nasopharyngitis [Unknown]
  - Epistaxis [Unknown]
  - Angina pectoris [Unknown]
  - Chest pain [Unknown]
  - Hypoaesthesia [Unknown]
  - Movement disorder [Unknown]
  - Movement disorder [Unknown]
  - Dyspnoea [Unknown]
  - Blood pressure abnormal [Recovering/Resolving]
  - Eczema [Recovered/Resolved]
  - Urticaria [Unknown]
  - Dizziness [Unknown]
  - Arthralgia [Unknown]
  - Pruritus [Unknown]
  - Varicella virus test positive [Unknown]
  - Upper-airway cough syndrome [Unknown]
  - Finger deformity [Unknown]

NARRATIVE: CASE EVENT DATE: 20230201
